FAERS Safety Report 9959136 (Version 1)
Quarter: 2014Q1

REPORT INFORMATION
  Report Type: Report from Study
  Country: US (occurrence: US)
  Receive Date: 20140305
  Receipt Date: 20140305
  Transmission Date: 20141002
  Serious: No
  Sender: FDA-Public Use
  Company Number: US-ABBVIE-13P-163-1102330-00

PATIENT
  Sex: Female

DRUGS (11)
  1. HUMIRA [Suspect]
     Indication: PSORIASIS
     Dates: start: 20130516
  2. HUMIRA [Suspect]
  3. HUMIRA [Suspect]
  4. VENTOLIN HFA [Concomitant]
     Indication: ASTHMA
  5. BENICAR [Concomitant]
     Indication: HYPERTENSION
     Dosage: 40/25 MG
  6. NEXIUM [Concomitant]
     Indication: DYSPEPSIA
     Dosage: 20 MG DAILY
  7. VIIBRYD [Concomitant]
     Indication: DEPRESSION
     Dosage: 10 MG DAILY
  8. LASIX [Concomitant]
     Indication: DIURETIC THERAPY
     Dosage: 20 MG DAILY
  9. MACRODANTIN [Concomitant]
     Indication: PROPHYLAXIS URINARY TRACT INFECTION
     Dosage: 100 MG DAILY
  10. SIMVASTATIN [Concomitant]
     Indication: BLOOD CHOLESTEROL
     Dosage: 20 MG DAILY
  11. ASPIRIN [Concomitant]
     Indication: ANTICOAGULANT THERAPY
     Dosage: 81 MG DAILY

REACTIONS (2)
  - Headache [Not Recovered/Not Resolved]
  - Fungal infection [Not Recovered/Not Resolved]
